FAERS Safety Report 22073563 (Version 1)
Quarter: 2023Q1

REPORT INFORMATION
  Report Type: Spontaneous
  Country: VN (occurrence: None)
  Receive Date: 20230308
  Receipt Date: 20230308
  Transmission Date: 20230418
  Serious: Yes (Other)
  Sender: FDA-Public Use
  Company Number: VN-ROCHE-3297908

PATIENT
  Age: 33 Year
  Sex: Male

DRUGS (1)
  1. ALECENSA [Suspect]
     Active Substance: ALECTINIB HYDROCHLORIDE
     Indication: Product used for unknown indication
     Route: 065
     Dates: start: 20210420, end: 20221130

REACTIONS (4)
  - Metastases to lymph nodes [Unknown]
  - Lung neoplasm [Unknown]
  - Hepatitis B reactivation [Unknown]
  - Fatigue [Unknown]
